FAERS Safety Report 15300453 (Version 1)
Quarter: 2018Q3

REPORT INFORMATION
  Report Type: Spontaneous
  Country: US (occurrence: US)
  Receive Date: 20180821
  Receipt Date: 20180821
  Transmission Date: 20181010
  Serious: Yes (Other)
  Sender: FDA-Public Use
  Company Number: US-MYLANLABS-2018M1061889

PATIENT
  Age: 88 Year
  Sex: Female
  Weight: 75 kg

DRUGS (2)
  1. CLONAZEPAM TABLETS, USP [Suspect]
     Active Substance: CLONAZEPAM
     Dosage: UNK DOSE INCREASED TO 1 TO 2 TABLETS AS NEEDED AT BEDTIME
  2. CLONAZEPAM TABLETS, USP [Suspect]
     Active Substance: CLONAZEPAM
     Indication: RESTLESS LEGS SYNDROME
     Dosage: UNK
     Route: 048

REACTIONS (6)
  - Product use in unapproved indication [Unknown]
  - Product quality issue [Unknown]
  - Cerebrovascular accident [Recovered/Resolved]
  - Transient ischaemic attack [Unknown]
  - Drug ineffective [Unknown]
  - Diarrhoea [Unknown]

NARRATIVE: CASE EVENT DATE: 201803
